FAERS Safety Report 5424952-6 (Version None)
Quarter: 2007Q3

REPORT INFORMATION
  Report Type: 
  Country: None (occurrence: None)
  Receive Date: 20070824
  Receipt Date: 20070821
  Transmission Date: 20080115
  Serious: Yes (Death, Hospitalization)
  Sender: FDA-Public Use
  Company Number: A0673486A

PATIENT
  Age: 63 Year
  Sex: Male

DRUGS (3)
  1. FLONASE [Suspect]
     Indication: RHINITIS ALLERGIC
     Route: 045
     Dates: start: 20040101
  2. INSULIN [Concomitant]
  3. IRON SUPPLEMENT [Concomitant]

REACTIONS (2)
  - DIABETIC COMPLICATION [None]
  - RESPIRATORY FAILURE [None]
